FAERS Safety Report 25149944 (Version 1)
Quarter: 2025Q2

REPORT INFORMATION
  Report Type: Spontaneous
  Country: FR (occurrence: FR)
  Receive Date: 20250402
  Receipt Date: 20250402
  Transmission Date: 20250717
  Serious: Yes (Other)
  Sender: GRIFOLS
  Company Number: FR-IGSA-BIG0033874

PATIENT
  Age: 37 Year
  Sex: Male

DRUGS (1)
  1. XEMBIFY [Suspect]
     Active Substance: HUMAN IMMUNOGLOBULIN G
     Indication: Secondary immunodeficiency
     Dosage: 5 GRAM, Q.WK.
     Route: 058
     Dates: start: 20240819

REACTIONS (4)
  - Infusion site erythema [Unknown]
  - Infusion site pain [Unknown]
  - Infusion site fibrosis [Unknown]
  - Infusion site necrosis [Unknown]

NARRATIVE: CASE EVENT DATE: 20250319
